FAERS Safety Report 21677892 (Version 1)
Quarter: 2022Q4

REPORT INFORMATION
  Report Type: Spontaneous
  Country: FR (occurrence: FR)
  Receive Date: 20221203
  Receipt Date: 20221203
  Transmission Date: 20230113
  Serious: Yes (Hospitalization)
  Sender: FDA-Public Use
  Company Number: None

PATIENT
  Age: 29 Year
  Sex: Female

DRUGS (2)
  1. ALPRAZOLAM [Suspect]
     Active Substance: ALPRAZOLAM
     Indication: Toxicity to various agents
     Dosage: ACCORDING TO THE PATIENT, WOULD HAVE TAKEN 70 TABLETS OF 0.25MG
     Route: 065
     Dates: start: 20221103, end: 20221103
  2. TERALITHE [Suspect]
     Active Substance: LITHIUM CARBONATE
     Indication: Toxicity to various agents
     Dosage: ACCORDING TO THE PATIENT TOOK 60 TABLETS OF 400MG, TERALITHE LP 400 MG, PROLONGED-RELEASE SCORED TAB
     Route: 065
     Dates: start: 20221103, end: 20221103

REACTIONS (2)
  - Altered state of consciousness [Recovered/Resolved]
  - Toxicity to various agents [Recovered/Resolved]

NARRATIVE: CASE EVENT DATE: 20221103
